FAERS Safety Report 9982680 (Version 1)
Quarter: 2014Q1

REPORT INFORMATION
  Report Type: Spontaneous
  Country: US (occurrence: None)
  Receive Date: 20140128
  Receipt Date: 20140128
  Transmission Date: 20141002
  Serious: Yes (Other)
  Sender: FDA-Public Use
  Company Number: A-NJ2013-83278

PATIENT
  Age: 26 Year
  Sex: Female

DRUGS (3)
  1. TRACLEER (BOSENTAN) TABLET [Suspect]
     Indication: PULMONARY ARTERIAL HYPERTENSION
     Route: 048
  2. SILDENAFIL (SILDENAFIL) [Concomitant]
  3. REMODULIN (TREPROSTINIL SODIUM) [Concomitant]

REACTIONS (5)
  - Ascites [None]
  - Infusion site pain [None]
  - Infusion site erythema [None]
  - Pain [None]
  - Walking aid user [None]
